FAERS Safety Report 6282745-4 (Version None)
Quarter: 2009Q3

REPORT INFORMATION
  Report Type: 
  Country: None (occurrence: None)
  Receive Date: 20090724
  Receipt Date: 20090529
  Transmission Date: 20100115
  Serious: Yes (Other)
  Sender: FDA-Public Use
  Company Number: JP-JNJFOC-20070706362

PATIENT
  Sex: Female
  Weight: 56 kg

DRUGS (7)
  1. ITRIZOLE [Suspect]
     Indication: PROPHYLAXIS
     Route: 048
  2. ONCOVIN [Interacting]
     Route: 042
  3. ONCOVIN [Interacting]
     Indication: LYMPHOMA
     Route: 042
  4. ADRIACIN [Concomitant]
     Indication: LYMPHOMA
     Route: 042
  5. ENDOXAN [Concomitant]
     Indication: LYMPHOMA
     Route: 042
  6. PREDNISOLONE [Concomitant]
     Indication: LYMPHOMA
     Route: 048
  7. RITUXAN [Concomitant]
     Indication: LYMPHOMA
     Route: 041

REACTIONS (5)
  - ARTHRALGIA [None]
  - CONSTIPATION [None]
  - DRUG INTERACTION [None]
  - ILEUS [None]
  - MYALGIA [None]
